FAERS Safety Report 5322134-X (Version None)
Quarter: 2007Q1

REPORT INFORMATION
  Report Type: 
  Country: None (occurrence: None)
  Receive Date: 20070222
  Receipt Date: 20061115
  Transmission Date: 20070707
  Serious: Yes (Other)
  Sender: FDA-Public Use
  Company Number: 2006142109

PATIENT
  Sex: Male

DRUGS (2)
  1. EXUBERA [Suspect]
     Indication: DIABETES MELLITUS INSULIN-DEPENDENT
     Dosage: 27 MG (9 MG, 3 IN 1 D), INHALATION
     Route: 055
     Dates: start: 20060101
  2. LANTUS [Concomitant]

REACTIONS (1)
  - DRUG INEFFECTIVE [None]
